FAERS Safety Report 7890891-4 (Version None)
Quarter: 2011Q4

REPORT INFORMATION
  Report Type: 
  Country: None (occurrence: None)
  Receive Date: 20111103
  Receipt Date: 20110726
  Transmission Date: 20120403
  Serious: No
  Sender: FDA-Public Use
  Company Number: US-AMGEN-USASP2011038084

PATIENT
  Age: 50 Year
  Sex: Female

DRUGS (2)
  1. PREDNISONE [Concomitant]
  2. ENBREL [Suspect]
     Indication: RHEUMATOID ARTHRITIS
     Dosage: 25 MG, 2 TIMES/WK
     Dates: start: 20110513

REACTIONS (13)
  - DIARRHOEA [None]
  - NIGHT SWEATS [None]
  - CHILLS [None]
  - RASH ERYTHEMATOUS [None]
  - WEIGHT INCREASED [None]
  - JOINT CREPITATION [None]
  - GINGIVAL DISORDER [None]
  - POLYP [None]
  - ALOPECIA [None]
  - GASTRITIS [None]
  - RHEUMATOID ARTHRITIS [None]
  - BLOOD CHOLESTEROL INCREASED [None]
  - TOOTH DISCOLOURATION [None]
